FAERS Safety Report 16370690 (Version 1)
Quarter: 2019Q2

REPORT INFORMATION
  Report Type: Spontaneous
  Country: US (occurrence: US)
  Receive Date: 20190422
  Receipt Date: 20190422
  Transmission Date: 20190711
  Serious: Yes (Hospitalization)
  Sender: FDA-Public Use
  Company Number: None

PATIENT
  Age: 72 Year
  Sex: Male
  Weight: 96.16 kg

DRUGS (3)
  1. WARFARIN [Suspect]
     Active Substance: WARFARIN
     Indication: DEEP VEIN THROMBOSIS
     Route: 048
     Dates: start: 20170424
  2. WARFARIN [Suspect]
     Active Substance: WARFARIN
     Indication: HYPERCOAGULATION
     Route: 048
     Dates: start: 20170424
  3. WARFARIN [Suspect]
     Active Substance: WARFARIN
     Indication: HYPERCOAGULATION

REACTIONS (4)
  - International normalised ratio increased [None]
  - Alcohol problem [None]
  - Mouth haemorrhage [None]
  - Haemorrhage [None]

NARRATIVE: CASE EVENT DATE: 20190217
